FAERS Safety Report 5879454-X (Version None)
Quarter: 2008Q3

REPORT INFORMATION
  Report Type: 
  Country: None (occurrence: None)
  Receive Date: 20080912
  Receipt Date: 20080909
  Transmission Date: 20090109
  Serious: Yes (Death)
  Sender: FDA-Public Use
  Company Number: US-CELGENEUS-163-20785-08090546

PATIENT
  Sex: Female

DRUGS (1)
  1. THALOMID [Suspect]
     Indication: CERVIX CARCINOMA
     Route: 048
     Dates: start: 20080512, end: 20080801

REACTIONS (1)
  - RESPIRATORY FAILURE [None]
